FAERS Safety Report 7995030-7 (Version None)
Quarter: 2011Q4

REPORT INFORMATION
  Report Type: 
  Country: None (occurrence: None)
  Receive Date: 20111220
  Receipt Date: 20111214
  Transmission Date: 20120403
  Serious: Yes (Hospitalization)
  Sender: FDA-Public Use
  Company Number: FR-PFIZER INC-2011294229

PATIENT
  Age: 63 Year
  Sex: Male

DRUGS (3)
  1. AUGMENTIN [Concomitant]
     Indication: PAIN IN JAW
     Dosage: 1 G, 3X/DAY
     Dates: start: 20110926
  2. CYTARABINE [Suspect]
     Indication: BURKITT'S LYMPHOMA
     Dosage: UNK
     Route: 042
     Dates: start: 20110912, end: 20110916
  3. ETOPOSIDE [Suspect]
     Indication: BURKITT'S LYMPHOMA
     Dosage: UNK
     Dates: start: 20110912, end: 20110914

REACTIONS (2)
  - FEBRILE BONE MARROW APLASIA [None]
  - RETINAL HAEMORRHAGE [None]
